FAERS Safety Report 15200146 (Version 1)
Quarter: 2018Q3

REPORT INFORMATION
  Report Type: Other
  Country: SG (occurrence: SG)
  Receive Date: 20180726
  Receipt Date: 20180726
  Transmission Date: 20181010
  Serious: Yes (Hospitalization)
  Sender: FDA-Public Use
  Company Number: SG-ORCHID HEALTHCARE-2052748

PATIENT
  Age: 57 Year
  Sex: Male

DRUGS (1)
  1. OLANZAPINE. [Suspect]
     Active Substance: OLANZAPINE
     Indication: AGITATION
     Route: 065

REACTIONS (5)
  - Coma scale abnormal [Recovered/Resolved]
  - Pyrexia [Recovered/Resolved]
  - Blood pressure systolic increased [Recovered/Resolved]
  - Vital functions abnormal [Recovered/Resolved]
  - Malignant catatonia [Recovered/Resolved]
